FAERS Safety Report 21891087 (Version 1)
Quarter: 2023Q1

REPORT INFORMATION
  Report Type: Spontaneous
  Country: US (occurrence: None)
  Receive Date: 20230119
  Receipt Date: 20230119
  Transmission Date: 20230417
  Serious: No
  Sender: FDA-Public Use
  Company Number: None

PATIENT
  Age: 40 Year
  Sex: Male

DRUGS (1)
  1. NICORETTE [Suspect]
     Active Substance: NICOTINE
     Indication: Smoking cessation therapy
     Dosage: OTHER QUANTITY : 72 24X3 72;?
     Route: 048
     Dates: start: 20221006, end: 20221030

REACTIONS (5)
  - Product formulation issue [None]
  - Product quality issue [None]
  - Product design issue [None]
  - Product physical issue [None]
  - Crime [None]

NARRATIVE: CASE EVENT DATE: 20221006
